FAERS Safety Report 19927976 (Version 1)
Quarter: 2021Q4

REPORT INFORMATION
  Report Type: Spontaneous
  Country: US (occurrence: US)
  Receive Date: 20211006
  Receipt Date: 20211006
  Transmission Date: 20220303
  Serious: Yes (Other)
  Sender: FDA-Public Use
  Company Number: None

PATIENT
  Age: 41 Year
  Sex: Male
  Weight: 85.5 kg

DRUGS (1)
  1. AZITHROMYCIN ANHYDROUS [Suspect]
     Active Substance: AZITHROMYCIN ANHYDROUS
     Indication: Chlamydia test positive
     Dosage: ?          QUANTITY:1 INJECTION(S);OTHER FREQUENCY:ONCE;
     Route: 030
     Dates: start: 20211004, end: 20211004

REACTIONS (6)
  - Adverse drug reaction [None]
  - Chills [None]
  - Pyrexia [None]
  - Rash [None]
  - Nausea [None]
  - Paraesthesia [None]

NARRATIVE: CASE EVENT DATE: 20211004
